FAERS Safety Report 8460414-X (Version None)
Quarter: 2012Q2

REPORT INFORMATION
  Report Type: 
  Country: None (occurrence: None)
  Receive Date: 20120323
  Receipt Date: 20110913
  Transmission Date: 20120825
  Serious: Yes (Other)
  Sender: FDA-Public Use
  Company Number: 163-21880-11091619

PATIENT
  Age: 61 Year
  Sex: Female

DRUGS (6)
  1. HUMALOG [Concomitant]
  2. BENAMUSTINE (BENDAMUSTINE) [Concomitant]
  3. REVLIMID [Suspect]
     Indication: MULTIPLE MYELOMA
     Dosage: 25 MG, DAILY X 21/28 DAYS, PO
     Route: 048
     Dates: start: 20110809, end: 20110913
  4. LYRICA [Concomitant]
  5. MORPHINE [Concomitant]
  6. DEXAMETHASONE [Concomitant]

REACTIONS (1)
  - PANCYTOPENIA [None]
